FAERS Safety Report 6021902-9 (Version None)
Quarter: 2008Q4

REPORT INFORMATION
  Report Type: 
  Country: None (occurrence: None)
  Receive Date: 20081222
  Receipt Date: 20081020
  Transmission Date: 20090506
  Serious: No
  Sender: FDA-Public Use
  Company Number: ALL 1-2008-03060

PATIENT

DRUGS (1)
  1. VYVANSE [Suspect]
     Dosage: ORAL

REACTIONS (1)
  - HYPERSENSITIVITY [None]
